FAERS Safety Report 18718308 (Version 1)
Quarter: 2021Q1

REPORT INFORMATION
  Report Type: Spontaneous
  Country: US (occurrence: US)
  Receive Date: 20210108
  Receipt Date: 20210108
  Transmission Date: 20210419
  Serious: No
  Sender: FDA-Public Use
  Company Number: US-AMNEAL PHARMACEUTICALS-2019-AMRX-03131

PATIENT
  Sex: Female

DRUGS (2)
  1. ACTIVELLA [Suspect]
     Active Substance: ESTRADIOL\NORETHINDRONE ACETATE
     Indication: MENOPAUSAL SYMPTOMS
     Dosage: 0.5?1.0 MG
     Route: 065
     Dates: start: 20161104
  2. ACTIVELLA [Suspect]
     Active Substance: ESTRADIOL\NORETHINDRONE ACETATE
     Dosage: 1.0?0.5 MG
     Route: 065
     Dates: start: 20170309, end: 20170928

REACTIONS (1)
  - Therapeutic product effect decreased [Unknown]
